FAERS Safety Report 5645361-0 (Version None)
Quarter: 2008Q1

REPORT INFORMATION
  Report Type: 
  Country: None (occurrence: None)
  Receive Date: 20080229
  Receipt Date: 20080226
  Transmission Date: 20080703
  Serious: Yes (Death, Hospitalization)
  Sender: FDA-Public Use
  Company Number: D0056244A

PATIENT
  Age: 75 Year
  Sex: Female
  Weight: 75 kg

DRUGS (8)
  1. VIANI FORTE [Suspect]
     Dosage: 2UNIT TWICE PER DAY
     Route: 055
     Dates: start: 20071106
  2. THEOPHYLLINE [Concomitant]
     Dosage: 500MG TWICE PER DAY
     Route: 048
     Dates: start: 20070605
  3. SPIRIVA [Concomitant]
     Route: 065
     Dates: start: 20070605
  4. OXIS [Concomitant]
     Dosage: 2UNIT TWICE PER DAY
     Route: 055
     Dates: start: 20070605, end: 20071106
  5. BERODUAL [Concomitant]
     Dosage: 2UNIT FOUR TIMES PER DAY
     Route: 055
     Dates: start: 20070605, end: 20071106
  6. OXYGEN [Concomitant]
     Route: 065
  7. CIPROFLOXACIN HYDROCHLORIDE [Concomitant]
     Dosage: 500MG TWICE PER DAY
     Route: 048
     Dates: start: 20071106
  8. PREDNISOLONE [Concomitant]
     Route: 065

REACTIONS (2)
  - CARDIAC ARREST [None]
  - INFECTIVE EXACERBATION OF CHRONIC OBSTRUCTIVE AIRWAYS DISEASE [None]
